FAERS Safety Report 10221172 (Version 1)
Quarter: 2014Q2

REPORT INFORMATION
  Report Type: Spontaneous
  Country: US (occurrence: US)
  Receive Date: 20140606
  Receipt Date: 20140606
  Transmission Date: 20141212
  Serious: No
  Sender: FDA-Public Use
  Company Number: US-GLAXOSMITHKLINE-A1062704A

PATIENT
  Sex: Female

DRUGS (8)
  1. BREO ELLIPTA [Suspect]
     Indication: BRONCHITIS
     Dosage: 1PUFF PER DAY
     Route: 055
     Dates: end: 201402
  2. VENTOLIN [Suspect]
     Indication: BRONCHITIS
     Dosage: 1PUFF TWICE PER DAY
     Route: 055
     Dates: end: 201402
  3. Z-PAK [Concomitant]
  4. PREDNISONE [Concomitant]
  5. STEROID [Concomitant]
  6. NEBULIZER TREATMENT [Concomitant]
  7. KEFLEX [Concomitant]
  8. DIFLUCAN [Concomitant]

REACTIONS (9)
  - Cough [Not Recovered/Not Resolved]
  - Vomiting [Unknown]
  - Stress urinary incontinence [Unknown]
  - Fear [Unknown]
  - Stomatitis [Unknown]
  - Weight increased [Unknown]
  - Fungal infection [Unknown]
  - Emotional distress [Unknown]
  - Productive cough [Unknown]
